FAERS Safety Report 19509027 (Version 3)
Quarter: 2021Q3

REPORT INFORMATION
  Report Type: Report from Study
  Country: US (occurrence: US)
  Receive Date: 20210708
  Receipt Date: 20210816
  Transmission Date: 20211014
  Serious: Yes (Hospitalization, Other)
  Sender: FDA-Public Use
  Company Number: US-TAKEDA-2021TUS037676

PATIENT
  Age: 86 Year
  Sex: Male
  Weight: 66 kg

DRUGS (19)
  1. VITAMIN D3 [Concomitant]
     Active Substance: CHOLECALCIFEROL
  2. CALCIUM [Concomitant]
     Active Substance: CALCIUM
  3. KLOR?CON [Concomitant]
     Active Substance: POTASSIUM CHLORIDE
  4. VITAMIN B COMPLEX [Concomitant]
     Active Substance: CYANOCOBALAMIN\DEXPANTHENOL\NIACINAMIDE\PYRIDOXINE HYDROCHLORIDE\RIBOFLAVIN 5^-PHOSPHATE SODIUM\THIAMINE HYDROCHLORIDE\VITAMIN B COMPLEX
  5. NORMAL SALINE [Concomitant]
     Active Substance: SODIUM CHLORIDE
  6. PANTOPRAZOLE [Concomitant]
     Active Substance: PANTOPRAZOLE
  7. ASCORBIC ACID. [Concomitant]
     Active Substance: ASCORBIC ACID
  8. ACETAMINOPHEN. [Concomitant]
     Active Substance: ACETAMINOPHEN
  9. ATORVASTATIN [Concomitant]
     Active Substance: ATORVASTATIN
  10. HUMAN IMMUNOGLOBULIN; HYALURONIDASE [Suspect]
     Active Substance: HUMAN IMMUNOGLOBULIN G\HYALURONIDASE RECOMBINANT HUMAN
     Dosage: 30 GRAM, Q4WEEKS
     Route: 058
     Dates: start: 20160304
  11. ARICEPT [Concomitant]
     Active Substance: DONEPEZIL HYDROCHLORIDE
  12. DIPHENHYDRAMINE. [Concomitant]
     Active Substance: DIPHENHYDRAMINE
  13. LIDOCAINE. [Concomitant]
     Active Substance: LIDOCAINE
  14. EPINEPHRINE. [Concomitant]
     Active Substance: EPINEPHRINE
  15. HUMAN IMMUNOGLOBULIN; HYALURONIDASE [Suspect]
     Active Substance: HUMAN IMMUNOGLOBULIN G\HYALURONIDASE RECOMBINANT HUMAN
     Dosage: 30 GRAM, Q4WEEKS
     Route: 058
     Dates: start: 20160305
  16. LEVOTHYROXINE. [Concomitant]
     Active Substance: LEVOTHYROXINE
  17. CURCUMIN [Concomitant]
     Active Substance: CURCUMIN
  18. HUMAN IMMUNOGLOBULIN; HYALURONIDASE [Suspect]
     Active Substance: HUMAN IMMUNOGLOBULIN G\HYALURONIDASE RECOMBINANT HUMAN
     Indication: IMMUNODEFICIENCY COMMON VARIABLE
     Dosage: 30 GRAM, Q4WEEKS
     Route: 058
  19. FISH OIL [Concomitant]
     Active Substance: FISH OIL

REACTIONS (7)
  - Fall [Unknown]
  - Vertigo [Unknown]
  - Product dose omission issue [Unknown]
  - Acute kidney injury [Unknown]
  - Head injury [Unknown]
  - Device infusion issue [Unknown]
  - Infusion site pain [Unknown]

NARRATIVE: CASE EVENT DATE: 20210620
